FAERS Safety Report 9181051 (Version 1)
Quarter: 2013Q1

REPORT INFORMATION
  Report Type: Spontaneous
  Country: US (occurrence: US)
  Receive Date: 20130322
  Receipt Date: 20130322
  Transmission Date: 20140127
  Serious: Yes (Hospitalization)
  Sender: FDA-Public Use
  Company Number: US-BAYER-2013-033275

PATIENT
  Age: 24 Year
  Sex: Female
  Weight: 110.48 kg

DRUGS (6)
  1. OCELLA [Suspect]
  2. NITROGLYCERIN [Concomitant]
  3. FLEXERIL [Concomitant]
  4. ACETAMINOPHEN W/HYDROCODONE [Concomitant]
  5. CELEBREX [Concomitant]
  6. CEPHALEXIN [Concomitant]

REACTIONS (1)
  - Pulmonary embolism [None]
